FAERS Safety Report 4746081-7 (Version None)
Quarter: 2005Q3

REPORT INFORMATION
  Report Type: 
  Country: None (occurrence: None)
  Receive Date: 20050816
  Receipt Date: 20050803
  Transmission Date: 20060218
  Serious: Yes (Hospitalization)
  Sender: FDA-Public Use
  Company Number: 2005AP04329

PATIENT
  Age: 72 Year
  Sex: Male

DRUGS (7)
  1. TENORMIN [Suspect]
     Indication: HYPERTENSION
     Route: 048
     Dates: start: 20050613
  2. TENORMIN [Suspect]
     Indication: HYPERLIPIDAEMIA
     Route: 048
     Dates: start: 20050613
  3. NATRIX [Suspect]
     Indication: HYPERTENSION
     Route: 048
     Dates: start: 20050520, end: 20050613
  4. ADALAT [Concomitant]
     Route: 048
     Dates: start: 19970701
  5. RIBALL [Concomitant]
     Route: 048
     Dates: start: 19970701
  6. EPADEL [Concomitant]
     Route: 048
     Dates: start: 20040430
  7. BLOPRESS [Concomitant]
     Route: 048
     Dates: start: 20040430

REACTIONS (7)
  - ALANINE AMINOTRANSFERASE INCREASED [None]
  - ASPARTATE AMINOTRANSFERASE INCREASED [None]
  - BLOOD BILIRUBIN INCREASED [None]
  - BLOOD LACTATE DEHYDROGENASE INCREASED [None]
  - JAUNDICE [None]
  - LIVER DISORDER [None]
  - MALAISE [None]
